FAERS Safety Report 9479717 (Version 1)
Quarter: 2013Q3

REPORT INFORMATION
  Report Type: Spontaneous
  Country: US (occurrence: US)
  Receive Date: 20130828
  Receipt Date: 20130828
  Transmission Date: 20140515
  Serious: Yes (Hospitalization)
  Sender: FDA-Public Use
  Company Number: US-AMGEN-KDL042265

PATIENT
  Age: 67 Year
  Sex: Female

DRUGS (2)
  1. ENBREL [Suspect]
     Indication: RHEUMATOID ARTHRITIS
     Dosage: 25 MG, 2 TIMES/WK
     Route: 058
     Dates: start: 19980601
  2. CORTICOSTEROID NOS [Concomitant]

REACTIONS (4)
  - Respiratory tract infection [Unknown]
  - Productive cough [Unknown]
  - Dysphagia [Unknown]
  - Increased tendency to bruise [Unknown]
